FAERS Safety Report 14549430 (Version 2)
Quarter: 2018Q1

REPORT INFORMATION
  Report Type: Spontaneous
  Country: US (occurrence: US)
  Receive Date: 20180219
  Receipt Date: 20180315
  Transmission Date: 20180509
  Serious: Yes (Hospitalization)
  Sender: FDA-Public Use
  Company Number: US-DENDREON PHARMACEUTICALS LLC-2018DEN000083

PATIENT

DRUGS (9)
  1. LIPITOR [Concomitant]
     Active Substance: ATORVASTATIN CALCIUM
  2. PREDNISONE. [Concomitant]
     Active Substance: PREDNISONE
  3. PROVENGE [Suspect]
     Active Substance: SIPULEUCEL-T
     Indication: PROSTATE CANCER
     Dosage: UNK
     Dates: start: 20171006, end: 20171006
  4. TYLENOL [Concomitant]
     Active Substance: ACETAMINOPHEN
  5. HYDROCHLOROTHIAZIDE. [Concomitant]
     Active Substance: HYDROCHLOROTHIAZIDE
  6. LINEZOLID. [Concomitant]
     Active Substance: LINEZOLID
  7. ZYTIGA [Concomitant]
     Active Substance: ABIRATERONE ACETATE
  8. LASIX [Concomitant]
     Active Substance: FUROSEMIDE
  9. GLIPIZIDE. [Concomitant]
     Active Substance: GLIPIZIDE

REACTIONS (7)
  - Infection [Recovering/Resolving]
  - Culture positive [Unknown]
  - Staphylococcus test positive [Unknown]
  - Out of specification test results [Unknown]
  - Intestinal obstruction [Unknown]
  - White blood cell count increased [Recovering/Resolving]
  - Pyrexia [Recovering/Resolving]
